FAERS Safety Report 8958433 (Version 1)
Quarter: 2012Q4

REPORT INFORMATION
  Report Type: Spontaneous
  Country: US (occurrence: None)
  Receive Date: 20121205
  Receipt Date: 20121205
  Transmission Date: 20130627
  Serious: Yes (Hospitalization)
  Sender: FDA-Public Use
  Company Number: None

PATIENT
  Age: 61 Year
  Sex: Female
  Weight: 99.1 kg

DRUGS (2)
  1. DULOXETINE [Suspect]
     Indication: ALCOHOL DEPENDENCE SYNDROME
     Dosage: 40mg, 20mg, 2xday oral
     Route: 048
  2. PREGABALIN [Suspect]
     Indication: ALCOHOL DEPENDENCE SYNDROME
     Dosage: 300mg, 150mg, 2x/day, oral
     Route: 048

REACTIONS (1)
  - Back pain [None]
